FAERS Safety Report 5918418-4 (Version None)
Quarter: 2008Q4

REPORT INFORMATION
  Report Type: 
  Country: None (occurrence: None)
  Receive Date: 20081014
  Receipt Date: 20081014
  Transmission Date: 20090506
  Serious: No
  Sender: FDA-Public Use
  Company Number: None

PATIENT
  Sex: Female

DRUGS (4)
  1. HUMIRA [Suspect]
     Indication: RHEUMATOID ARTHRITIS
     Dosage: 40MG SC (057)
     Route: 058
     Dates: start: 20060928, end: 20080901
  2. METHOTREXATE [Concomitant]
  3. PREDNISONE TAB [Concomitant]
  4. ALENDRONATE SODIUM [Concomitant]

REACTIONS (3)
  - CARBOHYDRATE ANTIGEN 19-9 INCREASED [None]
  - PANCREATITIS [None]
  - WEIGHT DECREASED [None]
